FAERS Safety Report 17007478 (Version 1)
Quarter: 2019Q4

REPORT INFORMATION
  Report Type: Report from Study
  Country: US (occurrence: US)
  Receive Date: 20191108
  Receipt Date: 20191108
  Transmission Date: 20200122
  Serious: Yes (Hospitalization)
  Sender: FDA-Public Use
  Company Number: US-ROCHE-2456294

PATIENT
  Sex: Female

DRUGS (1)
  1. ZELBORAF [Suspect]
     Active Substance: VEMURAFENIB
     Indication: RECTOSIGMOID CANCER
     Dosage: TAKE 2 TABLET(S) BY MOUTH TWICE A DAY
     Route: 048

REACTIONS (4)
  - Thrombosis [Unknown]
  - Intentional product use issue [Unknown]
  - Off label use [Unknown]
  - Large intestinal haemorrhage [Unknown]
